FAERS Safety Report 9832251 (Version 1)
Quarter: 2014Q1

REPORT INFORMATION
  Report Type: Spontaneous
  Country: US (occurrence: US)
  Receive Date: 20140121
  Receipt Date: 20140121
  Transmission Date: 20141002
  Serious: Yes (Hospitalization, Other)
  Sender: FDA-Public Use
  Company Number: US-PFIZER INC-2014015597

PATIENT
  Age: 33 Year
  Sex: Female

DRUGS (4)
  1. DILANTIN [Suspect]
     Indication: CONVULSION
     Dosage: 300 MG, 1X/DAY (100MG THREE CAPUSULES AT BED TIME)
     Route: 048
     Dates: start: 20071222, end: 20080105
  2. PLAQUENIL [Concomitant]
     Dosage: 200 MG, 2X/DAY
  3. GABAPENTIN [Concomitant]
     Dosage: 300 MG, UNK
  4. TRAMADOL [Concomitant]
     Dosage: UNK

REACTIONS (1)
  - Stevens-Johnson syndrome [Recovering/Resolving]
